FAERS Safety Report 20735721 (Version 1)
Quarter: 2022Q2

REPORT INFORMATION
  Report Type: Other
  Country: US (occurrence: None)
  Receive Date: 20220421
  Receipt Date: 20220421
  Transmission Date: 20220721
  Serious: Yes (Hospitalization, Other)
  Sender: FDA-Public Use
  Company Number: US-ROCHE-3079176

PATIENT
  Sex: Male

DRUGS (1)
  1. RITUXIMAB [Suspect]
     Active Substance: RITUXIMAB
     Indication: Glomerulonephritis minimal lesion
     Route: 065

REACTIONS (4)
  - Glomerulonephritis minimal lesion [Unknown]
  - Steroid diabetes [Unknown]
  - Chronic kidney disease [Unknown]
  - Off label use [Unknown]
